FAERS Safety Report 13134610 (Version 6)
Quarter: 2019Q4

REPORT INFORMATION
  Report Type: Report from Study
  Country: US (occurrence: US)
  Receive Date: 20170120
  Receipt Date: 20191203
  Transmission Date: 20200122
  Serious: Yes (Other)
  Sender: FDA-Public Use
  Company Number: PHEH2014US006557

PATIENT
  Age: 48 Year
  Sex: Female
  Weight: 83.9 kg

DRUGS (2)
  1. GILENYA [Suspect]
     Active Substance: FINGOLIMOD HYDROCHLORIDE
     Indication: RELAPSING-REMITTING MULTIPLE SCLEROSIS
     Dosage: 0.5 MG, QD
     Route: 048
     Dates: start: 20140305
  2. GILENYA [Suspect]
     Active Substance: FINGOLIMOD HYDROCHLORIDE
     Indication: MULTIPLE SCLEROSIS
     Dosage: 0.5 MG, QD
     Route: 048

REACTIONS (21)
  - Musculoskeletal stiffness [Unknown]
  - Balance disorder [Unknown]
  - Foot deformity [Unknown]
  - Vision blurred [Not Recovered/Not Resolved]
  - Limb discomfort [Unknown]
  - Fatigue [Unknown]
  - Ocular hyperaemia [Unknown]
  - Multiple sclerosis [Unknown]
  - Multiple sclerosis relapse [Unknown]
  - Gait disturbance [Recovering/Resolving]
  - Frustration tolerance decreased [Unknown]
  - Crying [Unknown]
  - Nervous system disorder [Unknown]
  - Discomfort [Recovering/Resolving]
  - Bladder discomfort [Unknown]
  - Dry eye [Unknown]
  - Malaise [Unknown]
  - Glaucoma [Unknown]
  - Pain [Unknown]
  - Acquired claw toe [Unknown]
  - Blood pressure abnormal [Unknown]

NARRATIVE: CASE EVENT DATE: 20180427
